FAERS Safety Report 8487429-X (Version None)
Quarter: 2012Q2

REPORT INFORMATION
  Report Type: 
  Country: None (occurrence: None)
  Receive Date: 20120628
  Receipt Date: 20120628
  Transmission Date: 20120825
  Serious: No
  Sender: FDA-Public Use
  Company Number: None

PATIENT
  Age: 80 Year
  Sex: Female

DRUGS (1)
  1. ZETIA [Suspect]

REACTIONS (3)
  - TENDONITIS [None]
  - MUSCLE SPASMS [None]
  - PAIN IN EXTREMITY [None]
